FAERS Safety Report 7510037-1 (Version None)
Quarter: 2011Q2

REPORT INFORMATION
  Report Type: 
  Country: None (occurrence: None)
  Receive Date: 20110527
  Receipt Date: 20110518
  Transmission Date: 20111010
  Serious: Yes (Hospitalization)
  Sender: FDA-Public Use
  Company Number: JP-ROCHE-761607

PATIENT
  Weight: 51 kg

DRUGS (17)
  1. AVASTIN [Suspect]
     Route: 041
     Dates: start: 20101213, end: 20101213
  2. TAXOL [Suspect]
     Indication: LUNG ADENOCARCINOMA
     Route: 041
     Dates: start: 20101213, end: 20101213
  3. LENDORMIN [Concomitant]
     Route: 048
  4. DECADRON [Concomitant]
     Route: 048
     Dates: start: 20101214, end: 20101215
  5. CARBOPLATIN [Suspect]
     Indication: LUNG ADENOCARCINOMA
     Route: 041
     Dates: start: 20101213, end: 20101213
  6. AVASTIN [Suspect]
     Indication: LUNG ADENOCARCINOMA RECURRENT
     Route: 041
  7. AVASTIN [Suspect]
     Route: 041
  8. MUCOSTA [Concomitant]
     Dosage: DOSE FORM: PERORAL AGENT
     Route: 048
  9. FAMOTIDINE [Concomitant]
     Route: 065
     Dates: start: 20101213, end: 20101213
  10. ALOSENN [Concomitant]
     Dosage: DOSE FORM: GRANULATED POWDER
     Route: 048
  11. CHLOR-TRIMETON [Concomitant]
     Route: 051
     Dates: start: 20101213, end: 20101213
  12. LAXOBERON [Suspect]
     Indication: CONSTIPATION
     Dosage: DOSE: 8 GTT, FORM:PERORAL LIQUID PREPARATION
     Route: 048
     Dates: start: 20101216, end: 20101216
  13. AMLODIPINE [Concomitant]
     Route: 048
  14. OMEPRAZOLE [Concomitant]
     Dosage: DOSE FORM: UNCERTAINTY
     Route: 065
     Dates: start: 20101215, end: 20101216
  15. PREDNISOLONE [Concomitant]
     Dosage: DOSE FORM: UNCERTAINTY
  16. ALOXI [Concomitant]
     Route: 042
     Dates: start: 20101213, end: 20101213
  17. DECADRON [Concomitant]
     Dosage: DRUG: DECADRON (DEXAMETHASONE SODIUM PHOSPHATE)
     Route: 051
     Dates: start: 20101213, end: 20101213

REACTIONS (7)
  - BILIARY TRACT DISORDER [None]
  - C-REACTIVE PROTEIN INCREASED [None]
  - ABDOMINAL PAIN [None]
  - VOMITING [None]
  - LIVER DISORDER [None]
  - PYREXIA [None]
  - HAEMOPTYSIS [None]
